FAERS Safety Report 16526751 (Version 3)
Quarter: 2019Q4

REPORT INFORMATION
  Report Type: Report from Study
  Country: US (occurrence: US)
  Receive Date: 20190703
  Receipt Date: 20191031
  Transmission Date: 20200122
  Serious: Yes (Hospitalization)
  Sender: FDA-Public Use
  Company Number: US-BAYER-2019-125586

PATIENT
  Age: 31 Year
  Sex: Female
  Weight: 58.96 kg

DRUGS (6)
  1. ADEMPAS [Suspect]
     Active Substance: RIOCIGUAT
     Indication: PULMONARY ARTERIAL HYPERTENSION
     Dosage: UNK
     Route: 048
     Dates: start: 20190201
  2. LASIX [Concomitant]
     Active Substance: FUROSEMIDE
     Dosage: UNK
  3. ADEMPAS [Suspect]
     Active Substance: RIOCIGUAT
     Indication: PULMONARY ARTERIAL HYPERTENSION
     Dosage: 1 MG, TID
     Dates: start: 201901
  4. MESALAMINE. [Concomitant]
     Active Substance: MESALAMINE
     Dosage: UNK
  5. ADEMPAS [Suspect]
     Active Substance: RIOCIGUAT
     Indication: PULMONARY ARTERIAL HYPERTENSION
     Dosage: 2 MG, TID
     Route: 048
     Dates: start: 20190620
  6. REMODULIN [Concomitant]
     Active Substance: TREPROSTINIL
     Dosage: UNK
     Dates: start: 20190620

REACTIONS (15)
  - Product dose omission [Unknown]
  - Malaise [None]
  - Vomiting [None]
  - Drug dose titration not performed [None]
  - Palpitations [None]
  - Pancytopenia [None]
  - Product availability issue [None]
  - Iron deficiency anaemia [None]
  - Dyspnoea [None]
  - Neutropenia [None]
  - Inappropriate schedule of product administration [None]
  - Blood pressure increased [None]
  - Abdominal pain upper [None]
  - Syncope [None]
  - Catheterisation cardiac [None]

NARRATIVE: CASE EVENT DATE: 20190611
